FAERS Safety Report 8904367 (Version 1)
Quarter: 2012Q4

REPORT INFORMATION
  Report Type: 
  Country: US (occurrence: US)
  Receive Date: 20121112
  Receipt Date: 20121112
  Transmission Date: 20130627
  Serious: No
  Sender: FDA-Public Use
  Company Number: US-009507513-1211USA004621

PATIENT
  Age: 19 Year
  Sex: Female
  Weight: 154 kg

DRUGS (1)
  1. IMPLANON [Suspect]
     Indication: CONTRACEPTION
     Dosage: 1 rod 3 year use
     Dates: start: 20111122

REACTIONS (1)
  - Unintended pregnancy [Unknown]
